FAERS Safety Report 22283409 (Version 3)
Quarter: 2023Q2

REPORT INFORMATION
  Report Type: Spontaneous
  Country: US (occurrence: US)
  Receive Date: 20230504
  Receipt Date: 20230509
  Transmission Date: 20230721
  Serious: Yes (Hospitalization, Other)
  Sender: FDA-Public Use
  Company Number: US-ELI_LILLY_AND_COMPANY-US202305000726

PATIENT
  Age: 63 Year
  Sex: Female

DRUGS (3)
  1. HUMALOG [Suspect]
     Active Substance: INSULIN LISPRO
     Indication: Diabetes mellitus
     Dosage: UNK UNK, UNKNOWN
     Route: 065
     Dates: start: 1993
  2. GLUCOPHAGE [Concomitant]
     Active Substance: METFORMIN HYDROCHLORIDE
     Indication: Diabetes mellitus
  3. CYTOMEL [Concomitant]
     Active Substance: LIOTHYRONINE SODIUM
     Indication: Thyroiditis
     Dosage: UNK UNK, UNKNOWN
     Route: 065

REACTIONS (11)
  - Nervous system disorder [Unknown]
  - Craniocerebral injury [Recovering/Resolving]
  - Road traffic accident [Unknown]
  - Migraine [Unknown]
  - Memory impairment [Unknown]
  - Blood pressure increased [Unknown]
  - Post procedural oedema [Unknown]
  - Hypoaesthesia [Unknown]
  - Facial pain [Unknown]
  - Nerve injury [Unknown]
  - Drug hypersensitivity [Unknown]

NARRATIVE: CASE EVENT DATE: 20211101
